FAERS Safety Report 6051326-X (Version None)
Quarter: 2009Q1

REPORT INFORMATION
  Report Type: 
  Country: None (occurrence: None)
  Receive Date: 20090126
  Receipt Date: 20090114
  Transmission Date: 20090719
  Serious: Yes (Life-Threatening)
  Sender: FDA-Public Use
  Company Number: FR-PFIZER INC-2009158343

PATIENT

DRUGS (6)
  1. ALDACTONE [Suspect]
     Route: 048
     Dates: end: 20081022
  2. COAPROVEL [Suspect]
     Dosage: 300 MG, 1X/DAY
     Route: 048
     Dates: end: 20081022
  3. LASILIX [Suspect]
     Route: 048
     Dates: end: 20081022
  4. DILTIAZEM HCL [Suspect]
     Route: 048
     Dates: end: 20081022
  5. FENOFIBRATE [Concomitant]
  6. DIOSMECTITE [Concomitant]
     Dosage: UNK
     Dates: start: 20081001

REACTIONS (9)
  - BRADYCARDIA [None]
  - HAEMODYNAMIC INSTABILITY [None]
  - HYPERKALAEMIA [None]
  - HYPONATRAEMIA [None]
  - MULTI-ORGAN FAILURE [None]
  - RENAL FAILURE ACUTE [None]
  - RESPIRATORY DISORDER [None]
  - SEPTIC SHOCK [None]
  - SINOATRIAL BLOCK [None]
